FAERS Safety Report 16417214 (Version 1)
Quarter: 2019Q2

REPORT INFORMATION
  Report Type: Spontaneous
  Country: NL (occurrence: NL)
  Receive Date: 20190611
  Receipt Date: 20190611
  Transmission Date: 20190711
  Serious: Yes (Hospitalization)
  Sender: FDA-Public Use
  Company Number: NL-NAPPMUNDI-GBR-2019-0067092

PATIENT
  Age: 71 Year
  Sex: Male

DRUGS (10)
  1. ELIGARD [Suspect]
     Active Substance: LEUPROLIDE ACETATE
     Indication: PROSTATE CANCER
     Dosage: 45 MG,1 X 6 MONTHS
     Route: 058
     Dates: start: 20180512
  2. ELIGARD [Suspect]
     Active Substance: LEUPROLIDE ACETATE
     Dosage: 45 MG,1 X 6 MONTHS
     Route: 058
     Dates: start: 20190514
  3. OXYCODONE HYDROCHLORIDE. [Suspect]
     Active Substance: OXYCODONE HYDROCHLORIDE
     Indication: PAIN
     Dosage: UNK UNK, UNKNOWN FREQ.
     Route: 065
  4. ELIGARD [Suspect]
     Active Substance: LEUPROLIDE ACETATE
     Dosage: 45 MG,1 X 6 MONTHS
     Route: 058
     Dates: start: 20190514
  5. ELIGARD [Suspect]
     Active Substance: LEUPROLIDE ACETATE
     Dosage: 45 MG,1 X 6 MONTHS
     Route: 058
     Dates: start: 20190514
  6. ELIGARD [Suspect]
     Active Substance: LEUPROLIDE ACETATE
     Dosage: 45 MG,1 X 6 MONTHS
     Route: 058
     Dates: start: 20181114
  7. ELIGARD [Suspect]
     Active Substance: LEUPROLIDE ACETATE
     Dosage: 45 MG,1 X 6 MONTHS
     Route: 058
     Dates: start: 20181114
  8. ELIGARD [Suspect]
     Active Substance: LEUPROLIDE ACETATE
     Dosage: 45 MG,1 X 6 MONTHS
     Route: 058
     Dates: start: 20180512
  9. ELIGARD [Suspect]
     Active Substance: LEUPROLIDE ACETATE
     Dosage: 45 MG,1 X 6 MONTHS
     Route: 058
     Dates: start: 20181114
  10. ELIGARD [Suspect]
     Active Substance: LEUPROLIDE ACETATE
     Dosage: 45 MG,1 X 6 MONTHS
     Route: 058
     Dates: start: 20190512

REACTIONS (9)
  - Malaise [Unknown]
  - Abdominal pain [Unknown]
  - Vomiting [Unknown]
  - Nausea [Unknown]
  - Infection [Unknown]
  - Prostatic specific antigen increased [Recovering/Resolving]
  - Fatigue [Unknown]
  - Diarrhoea [Unknown]
  - Constipation [Unknown]

NARRATIVE: CASE EVENT DATE: 20181115
